FAERS Safety Report 4761572-0 (Version None)
Quarter: 2005Q3

REPORT INFORMATION
  Report Type: 
  Country: None (occurrence: None)
  Receive Date: 20050826
  Receipt Date: 20050118
  Transmission Date: 20060218
  Serious: Yes (Death)
  Sender: FDA-Public Use
  Company Number: USA-2005-0018403

PATIENT
  Age: 25 Year
  Sex: Female

DRUGS (4)
  1. OXYCONTIN [Suspect]
  2. ALCOHOL (ETHANOL) [Suspect]
  3. CAFFEINE (CAFFEINE) [Suspect]
  4. DIAZEPAM [Suspect]

REACTIONS (3)
  - ACCIDENTAL OVERDOSE [None]
  - CARDIO-RESPIRATORY ARREST [None]
  - VOMITING [None]
